FAERS Safety Report 9210415 (Version 2)
Quarter: 2013Q2

REPORT INFORMATION
  Report Type: Spontaneous
  Country: US (occurrence: US)
  Receive Date: 20130404
  Receipt Date: 20130410
  Transmission Date: 20140414
  Serious: Yes (Other)
  Sender: FDA-Public Use
  Company Number: US-JNJFOC-20130318514

PATIENT
  Age: 50 Year
  Sex: Female
  Weight: 49.9 kg

DRUGS (2)
  1. ZYRTEC IR [Suspect]
     Route: 048
  2. ZYRTEC IR [Suspect]
     Indication: MULTIPLE ALLERGIES
     Dosage: USED IT FOR 29039 DAYS, STARTED USING IT THREE MONTHS AGO AND I USED IT FOR A MONTH
     Route: 048

REACTIONS (2)
  - Amnesia [Recovering/Resolving]
  - Dysarthria [Recovering/Resolving]
